FAERS Safety Report 8604773-3 (Version None)
Quarter: 2012Q3

REPORT INFORMATION
  Report Type: 
  Country: None (occurrence: None)
  Receive Date: 20120820
  Receipt Date: 20120807
  Transmission Date: 20120928
  Serious: Yes (Death)
  Sender: FDA-Public Use
  Company Number: FI-SANOFI-AVENTIS-2012SA058627

PATIENT
  Sex: Female
  Weight: 0.77 kg

DRUGS (1)
  1. FUROSEMIDE [Suspect]
     Route: 064

REACTIONS (2)
  - DEATH NEONATAL [None]
  - FOETAL EXPOSURE DURING PREGNANCY [None]
